FAERS Safety Report 4380309-0 (Version None)
Quarter: 2004Q2

REPORT INFORMATION
  Report Type: 
  Country: None (occurrence: None)
  Receive Date: 20040616
  Receipt Date: 20040616
  Transmission Date: 20050107
  Serious: Yes (Other)
  Sender: FDA-Public Use
  Company Number: None

PATIENT

DRUGS (2)
  1. LIPITOR [Suspect]
     Indication: ATRIAL FIBRILLATION
     Dosage: 10 MG PO QD
     Route: 048
     Dates: start: 20010501, end: 20010701
  2. ZOCOR [Suspect]
     Indication: CARDIOMEGALY
     Dosage: 20 MG PO QD
     Route: 048
     Dates: start: 20040301, end: 20040501

REACTIONS (2)
  - FATIGUE [None]
  - PAIN IN EXTREMITY [None]
